FAERS Safety Report 4285558-8 (Version None)
Quarter: 2004Q1

REPORT INFORMATION
  Report Type: 
  Country: None (occurrence: None)
  Receive Date: 20040204
  Receipt Date: 20040120
  Transmission Date: 20041129
  Serious: Yes (Hospitalization)
  Sender: FDA-Public Use
  Company Number: US-JNJFOC-20040101667

PATIENT
  Sex: Female

DRUGS (1)
  1. DITROPAN XL [Suspect]
     Indication: DRUG USE FOR UNKNOWN INDICATION
     Dosage: SEE IMAGE

REACTIONS (6)
  - BLADDER DISORDER [None]
  - DRUG INEFFECTIVE [None]
  - GASTRIC ULCER [None]
  - HAEMORRHAGE [None]
  - INSOMNIA [None]
  - MICTURITION URGENCY [None]
